FAERS Safety Report 19882329 (Version 7)
Quarter: 2021Q4

REPORT INFORMATION
  Report Type: Report from Study
  Country: CN (occurrence: CN)
  Receive Date: 20210924
  Receipt Date: 20211129
  Transmission Date: 20220303
  Serious: Yes (Hospitalization, Other)
  Sender: FDA-Public Use
  Company Number: CN-BIOVITRUM-2021CN8463

PATIENT
  Age: 63 Year
  Sex: Female
  Weight: 54 kg

DRUGS (7)
  1. AVATROMBOPAG [Suspect]
     Active Substance: AVATROMBOPAG
     Indication: Immune thrombocytopenia
     Route: 048
     Dates: start: 20210305, end: 20210309
  2. AVATROMBOPAG [Suspect]
     Active Substance: AVATROMBOPAG
     Dosage: 40 MG (3 DAYS PER WEEK)/20 MG (REMAINING 4 DAYS PER WEEK) (1 IN 1 D)
     Route: 048
     Dates: start: 20210310, end: 20210317
  3. AVATROMBOPAG [Suspect]
     Active Substance: AVATROMBOPAG
     Route: 048
     Dates: start: 20210329, end: 20210419
  4. AVATROMBOPAG [Suspect]
     Active Substance: AVATROMBOPAG
     Route: 048
     Dates: start: 20210420, end: 20210427
  5. AVATROMBOPAG [Suspect]
     Active Substance: AVATROMBOPAG
     Route: 048
     Dates: start: 20210428, end: 20210824
  6. AVATROMBOPAG [Suspect]
     Active Substance: AVATROMBOPAG
     Dosage: 40 MG (3 DAYS PER WEEK)/20 MG (REMAINING 4 DAYS PER WEEK) (1 IN 1 D)
     Route: 048
     Dates: start: 20210825, end: 20210831
  7. CALCIUM CARBONATE D3 [Concomitant]
     Indication: Osteoporosis
     Dosage: 1 DOSAGE FORMS
     Route: 048
     Dates: start: 202009

REACTIONS (2)
  - Hepatic function abnormal [Recovered/Resolved]
  - Immune thrombocytopenia [Recovered/Resolved]

NARRATIVE: CASE EVENT DATE: 20210901
